FAERS Safety Report 11350746 (Version 1)
Quarter: 2015Q3

REPORT INFORMATION
  Report Type: Spontaneous
  Country: US (occurrence: US)
  Receive Date: 20150807
  Receipt Date: 20150807
  Transmission Date: 20151125
  Serious: No
  Sender: FDA-Public Use
  Company Number: US-JNJFOC-20150718178

PATIENT
  Age: 36 Year
  Sex: Female
  Weight: 68.04 kg

DRUGS (4)
  1. BIOTIN [Concomitant]
     Active Substance: BIOTIN
     Indication: HAIR DISORDER
     Dosage: FOR A COUPLE OF WEEKS
     Route: 047
  2. VITAMINS [Concomitant]
     Active Substance: VITAMINS
     Indication: NUTRITIONAL SUPPLEMENTATION
     Dosage: 1 YEAR
     Route: 047
  3. BIOTIN [Concomitant]
     Active Substance: BIOTIN
     Indication: NAIL DISORDER
     Dosage: FOR A COUPLE OF WEEKS
     Route: 047
  4. VISINE A [Suspect]
     Active Substance: NAPHAZOLINE HYDROCHLORIDE\PHENIRAMINE MALEATE
     Indication: MULTIPLE ALLERGIES
     Dosage: 1 DROP PER EYE; 1X
     Route: 047
     Dates: start: 201304, end: 20150723

REACTIONS (2)
  - Expired product administered [Recovering/Resolving]
  - Photophobia [Recovering/Resolving]

NARRATIVE: CASE EVENT DATE: 20150723
